FAERS Safety Report 4767132-X (Version None)
Quarter: 2005Q3

REPORT INFORMATION
  Report Type: 
  Country: None (occurrence: None)
  Receive Date: 20050913
  Receipt Date: 20050406
  Transmission Date: 20060218
  Serious: Yes (Death)
  Sender: FDA-Public Use
  Company Number: 2005AP02074

PATIENT
  Age: 25178 Day
  Sex: Female

DRUGS (13)
  1. OMEPRAZOLE [Suspect]
     Route: 048
     Dates: start: 20040301
  2. EPL [Concomitant]
     Route: 048
  3. URSODIOL [Concomitant]
     Route: 048
  4. MYONAL [Concomitant]
     Route: 048
  5. LENDORMIN [Concomitant]
     Indication: INSOMNIA
     Route: 048
  6. LENDORMIN [Concomitant]
     Route: 048
  7. GLUCOSE [Concomitant]
  8. ADELAVIN [Concomitant]
  9. NICHIPHAGEN [Concomitant]
  10. TATHION [Concomitant]
  11. LACTULOSE [Concomitant]
     Route: 048
  12. KANAMYCIN [Concomitant]
     Route: 048
  13. MIYA BM [Concomitant]
     Route: 048

REACTIONS (1)
  - HEPATITIS FULMINANT [None]
